FAERS Safety Report 10626567 (Version 1)
Quarter: 2014Q4

REPORT INFORMATION
  Report Type: Report from Study
  Country: CN (occurrence: CN)
  Receive Date: 20141204
  Receipt Date: 20141204
  Transmission Date: 20150529
  Serious: Yes (Other)
  Sender: FDA-Public Use
  Company Number: CN-PFIZER INC-2014328857

PATIENT

DRUGS (3)
  1. CYCLOSPORINE A [Interacting]
     Active Substance: CYCLOSPORINE
     Indication: PROPHYLAXIS AGAINST GRAFT VERSUS HOST DISEASE
     Dosage: 1.5 MG/KG, DAILY
     Route: 042
  2. VORICONAZOLE. [Suspect]
     Active Substance: VORICONAZOLE
     Indication: FUNGAL INFECTION
  3. CYCLOSPORINE A [Interacting]
     Active Substance: CYCLOSPORINE
     Dosage: 4-6 MG/KG, DAILY
     Route: 048

REACTIONS (3)
  - Immunosuppressant drug level increased [Recovered/Resolved with Sequelae]
  - Neurotoxicity [Recovered/Resolved with Sequelae]
  - Drug interaction [Recovered/Resolved with Sequelae]
